FAERS Safety Report 23741170 (Version 1)
Quarter: 2024Q2

REPORT INFORMATION
  Report Type: Spontaneous
  Country: GB (occurrence: GB)
  Receive Date: 20240415
  Receipt Date: 20240415
  Transmission Date: 20240715
  Serious: Yes (Other)
  Sender: FDA-Public Use
  Company Number: None

PATIENT
  Age: 65 Year
  Sex: Male
  Weight: 84 kg

DRUGS (7)
  1. DOXYCYCLINE [Suspect]
     Active Substance: DOXYCYCLINE
     Dosage: TWO CAPSULES TO BE TAKEN IMMEDIATELY THEN ONE...
     Route: 065
     Dates: start: 20240328
  2. UNSPECIFIED INGREDIENT [Concomitant]
     Active Substance: UNSPECIFIED INGREDIENT
     Dosage: USE AS DIRECTED, DURATION: 28 DAYS
     Dates: start: 20240219, end: 20240318
  3. ASPIRIN [Concomitant]
     Active Substance: ASPIRIN
     Dosage: TO HELP PREV..., DURATION: 28 DAYS
     Dates: start: 20240202, end: 20240301
  4. TAMSULOSIN HYDROCHLORIDE [Concomitant]
     Active Substance: TAMSULOSIN HYDROCHLORIDE
     Dates: start: 20220214
  5. OMEPRAZOLE [Concomitant]
     Active Substance: OMEPRAZOLE
     Dosage: WHEN REQUIRED
     Dates: start: 20220214
  6. NITROGLYCERIN [Concomitant]
     Active Substance: NITROGLYCERIN
     Dosage: TIME INTERVAL: AS NECESSARY: USE ONE TO TWO SPRAYS UNDER THE TONGUE, DURATION: 30 DAYS
     Route: 060
     Dates: start: 20240202, end: 20240303
  7. POLYETHYLENE GLYCOL 3350\POTASSIUM CHLORIDE\SODIUM BICARBONATE\SODIUM [Concomitant]
     Active Substance: POLYETHYLENE GLYCOL 3350\POTASSIUM CHLORIDE\SODIUM BICARBONATE\SODIUM CHLORIDE
     Dosage: TAKE ONE OR TWO SACHETS DISSOLVED IN WATER (125...
     Dates: start: 20220214

REACTIONS (1)
  - Vision blurred [Recovered/Resolved]
